FAERS Safety Report 23155443 (Version 1)
Quarter: 2023Q4

REPORT INFORMATION
  Report Type: Spontaneous
  Country: US (occurrence: US)
  Receive Date: 20231107
  Receipt Date: 20231107
  Transmission Date: 20240110
  Serious: No
  Sender: FDA-Public Use
  Company Number: US-SANOFI-01818909

PATIENT
  Age: 53 Year
  Sex: Female

DRUGS (1)
  1. LANTUS SOLOSTAR [Suspect]
     Active Substance: INSULIN GLARGINE
     Indication: Type 2 diabetes mellitus
     Dosage: 60 UNITS QD AND DRUG TREATMENT DURATION:SINCE MARCH2023
     Dates: start: 202303

REACTIONS (1)
  - Product storage error [Unknown]
